FAERS Safety Report 18466019 (Version 2)
Quarter: 2020Q4

REPORT INFORMATION
  Report Type: Spontaneous
  Country: US (occurrence: US)
  Receive Date: 20201105
  Receipt Date: 20201231
  Transmission Date: 20210114
  Serious: Yes (Other)
  Sender: FDA-Public Use
  Company Number: US-SA-2016SA041688

PATIENT

DRUGS (2)
  1. CAPRELSA [Suspect]
     Active Substance: VANDETANIB
     Indication: BLOOD THYROID STIMULATING HORMONE
     Dosage: 300 MG,QD
     Route: 048
     Dates: start: 20120221
  2. CAPRELSA [Suspect]
     Active Substance: VANDETANIB
     Indication: THYROID CANCER

REACTIONS (7)
  - Neoplasm malignant [Unknown]
  - Abdominal pain upper [Not Recovered/Not Resolved]
  - Gastritis [Unknown]
  - Pharyngitis [Unknown]
  - Erythema [Not Recovered/Not Resolved]
  - Disease progression [Unknown]
  - Acne [Not Recovered/Not Resolved]
